FAERS Safety Report 10227711 (Version 1)
Quarter: 2014Q2

REPORT INFORMATION
  Report Type: Spontaneous
  Country: US (occurrence: None)
  Receive Date: 20140606
  Receipt Date: 20140606
  Transmission Date: 20141212
  Serious: Yes (Hospitalization, Other)
  Sender: FDA-Public Use
  Company Number: 2014SA070111

PATIENT
  Age: 61 Year
  Sex: Female

DRUGS (1)
  1. DIPHENHYDRAMINE [Suspect]
     Indication: INSOMNIA
     Route: 048

REACTIONS (6)
  - Drug abuse [None]
  - Intentional overdose [None]
  - Delirium [None]
  - Agitation [None]
  - Hyperhidrosis [None]
  - Withdrawal syndrome [None]
